FAERS Safety Report 4677831-6 (Version None)
Quarter: 2005Q2

REPORT INFORMATION
  Report Type: 
  Country: None (occurrence: None)
  Receive Date: 20050527
  Receipt Date: 20050527
  Transmission Date: 20051028
  Serious: No
  Sender: FDA-Public Use
  Company Number: None

PATIENT
  Sex: Male

DRUGS (3)
  1. BACTRIM [Suspect]
     Indication: EAR DISCOMFORT
     Dosage: 800/160 TABS
     Dates: start: 20050331, end: 20050407
  2. TYLENOL (CAPLET) [Concomitant]
  3. ASPIRIN [Concomitant]

REACTIONS (3)
  - DYSURIA [None]
  - MALAISE [None]
  - RASH MACULO-PAPULAR [None]
